FAERS Safety Report 7925635-0 (Version None)
Quarter: 2011Q4

REPORT INFORMATION
  Report Type: 
  Country: None (occurrence: None)
  Receive Date: 20111118
  Receipt Date: 20110408
  Transmission Date: 20120403
  Serious: No
  Sender: FDA-Public Use
  Company Number: US-AMGEN-USASP2011013321

PATIENT
  Age: 58 Year
  Sex: Female

DRUGS (7)
  1. CELEBREX [Concomitant]
     Dosage: UNK
     Dates: start: 20060619
  2. LISINOPRIL HCT                     /00977901/ [Concomitant]
  3. AMBIEN [Concomitant]
  4. METHOTREXATE [Concomitant]
     Dosage: UNK
     Dates: start: 20060822
  5. FOLIC ACID [Concomitant]
     Dosage: UNK
     Dates: start: 20060822
  6. PROTONIX [Concomitant]
  7. ENBREL [Suspect]
     Indication: RHEUMATOID ARTHRITIS
     Dosage: 50 MG, QWK
     Dates: start: 20071221

REACTIONS (3)
  - PAIN IN EXTREMITY [None]
  - ARTHRALGIA [None]
  - THERAPEUTIC RESPONSE DECREASED [None]
